FAERS Safety Report 10427579 (Version 6)
Quarter: 2015Q4

REPORT INFORMATION
  Report Type: Spontaneous
  Country: FR (occurrence: FR)
  Receive Date: 20140903
  Receipt Date: 20151030
  Transmission Date: 20160304
  Serious: Yes (Hospitalization, Disabling, Other)
  Sender: FDA-Public Use
  Company Number: FR-PFIZER INC-2014243272

PATIENT
  Age: 28 Year
  Sex: Female
  Weight: 82 kg

DRUGS (1)
  1. TRINORDIOL [Suspect]
     Active Substance: ETHINYL ESTRADIOL\LEVONORGESTREL
     Indication: CONTRACEPTION
     Dosage: (30-40-30UG, 50-75-125UG), UNK
     Dates: start: 20061225

REACTIONS (5)
  - Urinary tract infection [Unknown]
  - Cranial nerve paralysis [Recovered/Resolved with Sequelae]
  - Haemorrhagic stroke [Recovered/Resolved with Sequelae]
  - Haemangioma [Recovered/Resolved with Sequelae]
  - Pneumonia [Unknown]

NARRATIVE: CASE EVENT DATE: 20070225
